FAERS Safety Report 20699920 (Version 1)
Quarter: 2022Q2

REPORT INFORMATION
  Report Type: Spontaneous
  Country: IN (occurrence: IN)
  Receive Date: 20220412
  Receipt Date: 20220412
  Transmission Date: 20220721
  Serious: Yes (Hospitalization, Other)
  Sender: FDA-Public Use
  Company Number: IN-NOVARTISPH-NVSC2021IN090718

PATIENT
  Age: 62 Year
  Sex: Female

DRUGS (7)
  1. SIMULECT [Suspect]
     Active Substance: BASILIXIMAB
     Indication: Renal transplant
     Dosage: 20 MG, UNKNOWN
     Route: 065
     Dates: start: 20210306
  2. SIMULECT [Suspect]
     Active Substance: BASILIXIMAB
     Dosage: 20 MG, UNKNOWN
     Route: 065
     Dates: start: 20210310
  3. SOLU-MEDROL [Suspect]
     Active Substance: METHYLPREDNISOLONE SODIUM SUCCINATE
     Indication: Renal transplant
     Dosage: 500 MG
     Route: 065
  4. INSULIN NOS [Concomitant]
     Active Substance: INSULIN NOS
     Indication: Type 2 diabetes mellitus
     Dosage: UNK
     Route: 065
  5. PIPERACILLIN SODIUM\TAZOBACTAM SODIUM [Concomitant]
     Active Substance: PIPERACILLIN SODIUM\TAZOBACTAM SODIUM
     Indication: Product used for unknown indication
     Dosage: UNK
     Route: 065
     Dates: start: 20210324
  6. METHYLPREDNISOLONE [Concomitant]
     Active Substance: METHYLPREDNISOLONE
     Indication: Product used for unknown indication
     Dosage: 500 MG, QD
     Route: 042
     Dates: start: 20210325, end: 20210327
  7. DILTIAZEM [Concomitant]
     Active Substance: DILTIAZEM
     Indication: Product used for unknown indication
     Dosage: UNK
     Route: 065
     Dates: start: 20210325

REACTIONS (18)
  - Kidney transplant rejection [Unknown]
  - Medical device site thrombosis [Unknown]
  - Acute pulmonary oedema [Unknown]
  - Deep vein thrombosis [Unknown]
  - Delayed graft function [Unknown]
  - Renal tubular injury [Unknown]
  - Renal tubular necrosis [Unknown]
  - Endothelial dysfunction [Unknown]
  - Post procedural haematoma [Unknown]
  - Spigelian hernia [Unknown]
  - Hernia [Unknown]
  - Blood pressure abnormal [Unknown]
  - Acidosis [Unknown]
  - Oxygen saturation decreased [Unknown]
  - Total lung capacity abnormal [Unknown]
  - Oliguria [Unknown]
  - Pyrexia [Unknown]
  - Haematuria [Unknown]

NARRATIVE: CASE EVENT DATE: 20210309
